FAERS Safety Report 4287832-8 (Version None)
Quarter: 2004Q1

REPORT INFORMATION
  Report Type: 
  Country: None (occurrence: None)
  Receive Date: 20040205
  Receipt Date: 20040119
  Transmission Date: 20041129
  Serious: Yes (Death)
  Sender: FDA-Public Use
  Company Number: USA040156941

PATIENT
  Age: 49 Year
  Sex: Male

DRUGS (1)
  1. ZYPREXA [Suspect]

REACTIONS (2)
  - ALCOHOL USE [None]
  - LIVER DISORDER [None]
